FAERS Safety Report 17392126 (Version 1)
Quarter: 2020Q1

REPORT INFORMATION
  Report Type: Report from Study
  Country: None (occurrence: DE)
  Receive Date: 20200207
  Receipt Date: 20200207
  Transmission Date: 20200409
  Serious: Yes (Disabling)
  Sender: FDA-Public Use
  Company Number: DE-ABBVIE-20K-062-3265382-00

PATIENT
  Age: 58 Year
  Sex: Male
  Weight: 137 kg

DRUGS (14)
  1. HUMIRA [Suspect]
     Active Substance: ADALIMUMAB
     Indication: RHEUMATOID ARTHRITIS
     Route: 058
     Dates: start: 201002, end: 201004
  2. MABTHERA [Concomitant]
     Active Substance: RITUXIMAB
     Dates: start: 201601, end: 2016
  3. ENBREL [Concomitant]
     Active Substance: ETANERCEPT
     Indication: PRODUCT USED FOR UNKNOWN INDICATION
     Dates: start: 200911, end: 201002
  4. MTX [Concomitant]
     Active Substance: METHOTREXATE SODIUM
  5. SIMPONI [Concomitant]
     Active Substance: GOLIMUMAB
     Indication: PRODUCT USED FOR UNKNOWN INDICATION
     Dates: start: 201006, end: 201009
  6. SIMPONI [Concomitant]
     Active Substance: GOLIMUMAB
     Dates: start: 201011, end: 201205
  7. MABTHERA [Concomitant]
     Active Substance: RITUXIMAB
     Indication: PRODUCT USED FOR UNKNOWN INDICATION
     Dates: start: 201208, end: 201304
  8. MABTHERA [Concomitant]
     Active Substance: RITUXIMAB
     Dates: start: 201702, end: 2017
  9. MABTHERA [Concomitant]
     Active Substance: RITUXIMAB
     Dates: start: 201502
  10. TRUXIMA [Concomitant]
     Active Substance: RITUXIMAB-ABBS
     Indication: PRODUCT USED FOR UNKNOWN INDICATION
     Dates: start: 201905
  11. MABTHERA [Concomitant]
     Active Substance: RITUXIMAB
     Dates: start: 201709, end: 2017
  12. MTX [Concomitant]
     Active Substance: METHOTREXATE SODIUM
     Indication: PRODUCT USED FOR UNKNOWN INDICATION
  13. MABTHERA [Concomitant]
     Active Substance: RITUXIMAB
     Dates: start: 201801
  14. MTX [Concomitant]
     Active Substance: METHOTREXATE SODIUM

REACTIONS (2)
  - Overweight [Unknown]
  - Meniscus injury [Unknown]

NARRATIVE: CASE EVENT DATE: 20190422
